FAERS Safety Report 6834680-8 (Version None)
Quarter: 2010Q3

REPORT INFORMATION
  Report Type: 
  Country: None (occurrence: None)
  Receive Date: 20100712
  Receipt Date: 20070424
  Transmission Date: 20110219
  Serious: No
  Sender: FDA-Public Use
  Company Number: US-PFIZER INC-2007034222

PATIENT
  Sex: Male
  Weight: 76.363 kg

DRUGS (6)
  1. CHANTIX [Suspect]
     Indication: SMOKING CESSATION THERAPY
     Dates: start: 20070416
  2. ABILIFY [Concomitant]
  3. TRILEPTAL [Concomitant]
  4. ADVAIR DISKUS 100/50 [Concomitant]
  5. ALBUTEROL [Concomitant]
  6. MULTI-VITAMINS [Concomitant]

REACTIONS (2)
  - NAUSEA [None]
  - VOMITING [None]
